FAERS Safety Report 9053276 (Version 1)
Quarter: 2013Q1

REPORT INFORMATION
  Report Type: Spontaneous
  Country: FR (occurrence: FR)
  Receive Date: 20130208
  Receipt Date: 20130208
  Transmission Date: 20140127
  Serious: Yes (Hospitalization)
  Sender: FDA-Public Use
  Company Number: FR-GE HEALTHCARE MEDICAL DIAGNOSTICS-OMPQ-NO-1302S-0136

PATIENT
  Age: 55 Year
  Sex: Male

DRUGS (7)
  1. OMNIPAQUE [Suspect]
     Indication: PRODUCT USED FOR UNKNOWN INDICATION
     Dosage: DOSE NOT REPORTED
     Route: 042
     Dates: start: 20120430, end: 20120430
  2. OMNIPAQUE [Suspect]
     Indication: DIAGNOSTIC PROCEDURE
  3. INEXIUM [Suspect]
     Indication: PRODUCT USED FOR UNKNOWN INDICATION
     Dosage: DOSE NOT REPORTED
     Dates: start: 20120418
  4. ROCEPHINE [Suspect]
     Indication: INFECTION
     Dosage: DOSE NOT REPORTED
     Route: 042
     Dates: start: 20120422, end: 20120504
  5. GENTAMICINE [Suspect]
     Indication: HYPERTHERMIA
     Dosage: DOSE NOT REPORTED
     Route: 042
     Dates: start: 20120419, end: 20120422
  6. VANCOMYCINE [Suspect]
     Indication: HYPERTHERMIA
     Dosage: DOES NOT REPORTED
     Route: 042
     Dates: start: 20120419, end: 20120504
  7. IOMERON [Suspect]
     Indication: DIAGNOSTIC PROCEDURE
     Dosage: DOSE NOT REPORTED
     Route: 042
     Dates: start: 20120422, end: 20120422

REACTIONS (1)
  - Drug reaction with eosinophilia and systemic symptoms [Recovered/Resolved]
